FAERS Safety Report 9372244 (Version 1)
Quarter: 2013Q2

REPORT INFORMATION
  Report Type: Report from Study
  Country: US (occurrence: US)
  Receive Date: 20130627
  Receipt Date: 20130627
  Transmission Date: 20140414
  Serious: Yes (Death)
  Sender: FDA-Public Use
  Company Number: US-MYLANLABS-2012S1017835

PATIENT
  Age: 84 Year
  Sex: Male

DRUGS (12)
  1. CLOZAPINE TABLETS [Suspect]
     Indication: PSYCHOTIC DISORDER
     Route: 048
     Dates: start: 10090106, end: 20120620
  2. VITAMIN C [Concomitant]
  3. SENNA PLUS /00142201/ [Concomitant]
  4. OLANZAPINE [Concomitant]
  5. NEXIUM [Concomitant]
  6. MIDODRINE [Concomitant]
  7. LODOSYN [Concomitant]
  8. GALANTAMINE [Concomitant]
  9. IRON POLYMALTOSE [Concomitant]
  10. CARBIDOPA/LEVODOPA [Concomitant]
     Dosage: 25MG/100MG
  11. ASPIRIN [Concomitant]
  12. TYLENOL [Concomitant]

REACTIONS (1)
  - Parkinson^s disease [Fatal]
